FAERS Safety Report 13644804 (Version 1)
Quarter: 2017Q2

REPORT INFORMATION
  Report Type: Spontaneous
  Country: US (occurrence: US)
  Receive Date: 20170612
  Receipt Date: 20170612
  Transmission Date: 20170830
  Serious: No
  Sender: FDA-Public Use
  Company Number: US-ROCHE-1089075

PATIENT
  Age: 76 Year
  Sex: Female

DRUGS (1)
  1. XELODA [Suspect]
     Active Substance: CAPECITABINE
     Indication: BREAST CANCER METASTATIC
     Route: 065
     Dates: start: 20120701

REACTIONS (7)
  - Nausea [Unknown]
  - Erythema [Unknown]
  - Dry mouth [Unknown]
  - Fatigue [Unknown]
  - Upper-airway cough syndrome [Unknown]
  - Dyspepsia [Unknown]
  - Product quality issue [Unknown]

NARRATIVE: CASE EVENT DATE: 20120704
